FAERS Safety Report 6419487-8 (Version None)
Quarter: 2009Q4

REPORT INFORMATION
  Report Type: 
  Country: None (occurrence: None)
  Receive Date: 20091029
  Receipt Date: 20091022
  Transmission Date: 20100525
  Serious: Yes (Other)
  Sender: FDA-Public Use
  Company Number: CA-SP-2009-02743

PATIENT
  Age: 46 Year
  Sex: Female

DRUGS (3)
  1. TUBERSOL [Suspect]
     Indication: TUBERCULIN TEST
     Route: 023
     Dates: start: 20090112
  2. ATENOLOL TABLETS, BP [Concomitant]
  3. CRESTOR [Concomitant]

REACTIONS (3)
  - ERYTHEMA [None]
  - INJECTION SITE DERMATITIS [None]
  - INJECTION SITE PRURITUS [None]
